FAERS Safety Report 16097628 (Version 1)
Quarter: 2019Q1

REPORT INFORMATION
  Report Type: Report from Study
  Country: US (occurrence: US)
  Receive Date: 20190320
  Receipt Date: 20190320
  Transmission Date: 20190418
  Serious: Yes (Hospitalization, Other)
  Sender: FDA-Public Use
  Company Number: US-SHIRE-US201906805

PATIENT
  Age: 77 Year
  Sex: Female

DRUGS (1)
  1. NATPARA (PARATHYROID HORMONE) [Suspect]
     Active Substance: PARATHYROID HORMONE
     Indication: PRODUCT USED FOR UNKNOWN INDICATION
     Dosage: 50 MICROGRAM, 1X/DAY:QD
     Route: 058
     Dates: start: 20171115

REACTIONS (6)
  - Neuropathy peripheral [Unknown]
  - Head injury [Unknown]
  - Skin laceration [Unknown]
  - Fracture [Unknown]
  - Fall [Unknown]
  - Blood potassium decreased [Unknown]

NARRATIVE: CASE EVENT DATE: 20190220
